FAERS Safety Report 20818522 (Version 1)
Quarter: 2022Q2

REPORT INFORMATION
  Report Type: Spontaneous
  Country: US (occurrence: None)
  Receive Date: 20220511
  Receipt Date: 20220511
  Transmission Date: 20220721
  Serious: Yes (Hospitalization, Other)
  Sender: FDA-Public Use
  Company Number: None

PATIENT
  Age: 25 Year
  Sex: Female
  Weight: 81 kg

DRUGS (1)
  1. BEBTELOVIMAB [Suspect]
     Active Substance: BEBTELOVIMAB
     Indication: COVID-19
     Route: 042
     Dates: start: 20220511, end: 20220511

REACTIONS (9)
  - Nausea [None]
  - Dyspnoea [None]
  - Flushing [None]
  - Flushing [None]
  - Myalgia [None]
  - Hypoxia [None]
  - Tachycardia [None]
  - Fear [None]
  - Crying [None]

NARRATIVE: CASE EVENT DATE: 20220511
